FAERS Safety Report 4352508-5 (Version None)
Quarter: 2004Q2

REPORT INFORMATION
  Report Type: 
  Country: None (occurrence: None)
  Receive Date: 20040409
  Receipt Date: 20040104
  Transmission Date: 20050107
  Serious: No
  Sender: FDA-Public Use
  Company Number: PHEH2004US00518

PATIENT
  Sex: Female

DRUGS (2)
  1. ELIDEL [Suspect]
     Dosage: TOPICAL
     Route: 061
  2. ETHANOL (ETHANOL) [Suspect]

REACTIONS (3)
  - ALCOHOL INTERACTION [None]
  - BURNING SENSATION [None]
  - ERYTHEMA [None]
